FAERS Safety Report 5201185-X (Version None)
Quarter: 2007Q1

REPORT INFORMATION
  Report Type: 
  Country: None (occurrence: None)
  Receive Date: 20070103
  Receipt Date: 20061220
  Transmission Date: 20070707
  Serious: Yes (Hospitalization)
  Sender: FDA-Public Use
  Company Number: E2090-00158-CLI-JP

PATIENT
  Age: 58 Year
  Sex: Female

DRUGS (10)
  1. ZONEGRAN [Suspect]
     Indication: PARKINSON'S DISEASE
     Dosage: 75 MG, 1 IN 1 D, ORAL
     Route: 048
     Dates: start: 20040108
  2. SINEMET [Concomitant]
  3. SYMMETREL [Concomitant]
  4. ARTANE [Concomitant]
  5. PERMAX [Concomitant]
  6. FP (SELEGILINE) [Concomitant]
  7. ALOSENN (ALOSENN) [Concomitant]
  8. MUCOSTA (REBAMIPIDE) [Concomitant]
  9. PURSENNID (SENNA LEAF) [Concomitant]
  10. MAGLAX (MAGNESIUM OXIDE) [Concomitant]

REACTIONS (2)
  - BACK PAIN [None]
  - INGUINAL HERNIA [None]
